FAERS Safety Report 22255231 (Version 2)
Quarter: 2023Q2

REPORT INFORMATION
  Report Type: Spontaneous
  Country: US (occurrence: US)
  Receive Date: 20230426
  Receipt Date: 20230518
  Transmission Date: 20230722
  Serious: Yes (Other)
  Sender: FDA-Public Use
  Company Number: US-BAYER-2023A057475

PATIENT
  Age: 68 Year
  Sex: Male

DRUGS (1)
  1. JIVI [Suspect]
     Active Substance: DAMOCTOCOG ALFA PEGOL
     Dosage: 5000 IU

REACTIONS (3)
  - Haemarthrosis [Recovered/Resolved]
  - Fall [None]
  - Bone pain [None]

NARRATIVE: CASE EVENT DATE: 20230410
